FAERS Safety Report 4630961-7 (Version None)
Quarter: 2005Q2

REPORT INFORMATION
  Report Type: 
  Country: None (occurrence: None)
  Receive Date: 20050406
  Receipt Date: 20050406
  Transmission Date: 20051028
  Serious: No
  Sender: FDA-Public Use
  Company Number: None

PATIENT
  Sex: Female
  Weight: 79.2 kg

DRUGS (3)
  1. DOXORUBICIN HCL [Suspect]
     Dates: start: 20050118
  2. CYCLOPHOSPHAMIDE [Suspect]
     Dosage: 4 CYCLES DOSE DENSE (EVERY 2WEEKS)
  3. PROTONIX [Concomitant]

REACTIONS (9)
  - ANAL FISSURE [None]
  - DEHYDRATION [None]
  - FAILURE TO THRIVE [None]
  - IMMUNE SYSTEM DISORDER [None]
  - NAUSEA [None]
  - NEUTROPENIA [None]
  - PAIN [None]
  - PROCTALGIA [None]
  - SEPSIS [None]
